FAERS Safety Report 5474744-7 (Version None)
Quarter: 2007Q4

REPORT INFORMATION
  Report Type: 
  Country: None (occurrence: None)
  Receive Date: 20071002
  Receipt Date: 20070927
  Transmission Date: 20080405
  Serious: Yes (Death, Hospitalization)
  Sender: FDA-Public Use
  Company Number: A0648257A

PATIENT
  Age: 77 Year
  Sex: Female
  Weight: 64 kg

DRUGS (6)
  1. SERETIDE [Suspect]
     Indication: PULMONARY FIBROSIS
     Dosage: 2PUFF PER DAY
     Dates: start: 20070207, end: 20070402
  2. SINGULAIR [Concomitant]
     Dates: start: 20070201, end: 20070402
  3. AVELOX [Concomitant]
     Dates: start: 20070201, end: 20070402
  4. DIABINESE [Concomitant]
     Dates: start: 20070325, end: 20070402
  5. FUROSEMIDE [Concomitant]
     Dates: start: 20070207, end: 20070209
  6. PLAVIX [Concomitant]
     Dosage: .5TAB PER DAY
     Dates: start: 20070201, end: 20070301

REACTIONS (6)
  - CANDIDIASIS [None]
  - DEATH [None]
  - DEHYDRATION [None]
  - PARESIS [None]
  - PRURITUS [None]
  - TINNITUS [None]
